FAERS Safety Report 14485466 (Version 1)
Quarter: 2018Q1

REPORT INFORMATION
  Report Type: Spontaneous
  Country: DE (occurrence: DE)
  Receive Date: 20180205
  Receipt Date: 20180205
  Transmission Date: 20180509
  Serious: Yes (Hospitalization)
  Sender: FDA-Public Use
  Company Number: DE-JNJFOC-20180200602

PATIENT
  Age: 29 Year
  Sex: Male

DRUGS (4)
  1. PANTOZOL [Concomitant]
     Active Substance: PANTOPRAZOLE SODIUM
     Indication: ULCER
     Route: 065
     Dates: start: 20171202
  2. STELARA [Suspect]
     Active Substance: USTEKINUMAB
     Indication: CROHN^S DISEASE
     Route: 058
     Dates: start: 201705
  3. NOVALGIN (METAMIZOLE SODIUM) [Concomitant]
     Active Substance: METAMIZOLE SODIUM
     Indication: PAIN
     Route: 065
     Dates: start: 20171202
  4. FOLSAN [Concomitant]
     Active Substance: FOLIC ACID
     Indication: FOLATE DEFICIENCY
     Route: 065
     Dates: start: 20171202

REACTIONS (8)
  - Intestinal stenosis [Recovered/Resolved]
  - Gastrointestinal haemorrhage [Unknown]
  - Gastritis [Unknown]
  - Mechanical ileus [Unknown]
  - Shock haemorrhagic [Unknown]
  - Anal abscess [Recovered/Resolved]
  - Hiatus hernia [Unknown]
  - Malabsorption [Unknown]

NARRATIVE: CASE EVENT DATE: 2017
